FAERS Safety Report 4944106-7 (Version None)
Quarter: 2006Q1

REPORT INFORMATION
  Report Type: 
  Country: None (occurrence: None)
  Receive Date: 20060315
  Receipt Date: 20060303
  Transmission Date: 20060701
  Serious: Yes (Disabling, Other)
  Sender: FDA-Public Use
  Company Number: 2006AC00398

PATIENT
  Age: 84 Year
  Sex: Male

DRUGS (4)
  1. TOPROL-XL [Suspect]
     Indication: HYPERTENSION
  2. ALBUTEROL [Concomitant]
  3. FLUTICASONE PROPIONATE [Concomitant]
  4. SALMETEROL [Concomitant]

REACTIONS (1)
  - PEMPHIGOID [None]
